FAERS Safety Report 6721610-2 (Version None)
Quarter: 2010Q2

REPORT INFORMATION
  Report Type: 
  Country: None (occurrence: None)
  Receive Date: 20100512
  Receipt Date: 20100429
  Transmission Date: 20101027
  Serious: Yes (Hospitalization, Other)
  Sender: FDA-Public Use
  Company Number: PHHY2009FR06784

PATIENT
  Age: 81 Year
  Sex: Female

DRUGS (9)
  1. TAREG [Suspect]
     Dosage: 160 MG, QD
     Route: 048
  2. LOXEN LP [Suspect]
     Dosage: 50 MG, QD
     Route: 048
  3. ZOLPIDEM [Suspect]
     Dosage: UNK
     Route: 048
  4. DIAMICRON [Concomitant]
     Dosage: 60 MG DAILY
     Route: 048
  5. TANAKAN [Concomitant]
     Dosage: UNK
  6. PARACETAMOL [Concomitant]
     Dosage: UNK
  7. ACTONEL [Concomitant]
     Dosage: UNK
  8. ANTIHYPERTENSIVE DRUGS [Concomitant]
  9. ORAL ANTIDIABETICS [Concomitant]
     Dosage: UNK

REACTIONS (5)
  - DEMENTIA WITH LEWY BODIES [None]
  - FALL [None]
  - HUMERUS FRACTURE [None]
  - IMMOBILISATION PROLONGED [None]
  - LYMPHOMA [None]
